FAERS Safety Report 15230996 (Version 1)
Quarter: 2018Q3

REPORT INFORMATION
  Report Type: Spontaneous
  Country: US (occurrence: US)
  Receive Date: 20180802
  Receipt Date: 20180802
  Transmission Date: 20181010
  Serious: Yes (Other)
  Sender: FDA-Public Use
  Company Number: US-ACCORD-064092

PATIENT
  Age: 50 Year
  Sex: Female
  Weight: 65.77 kg

DRUGS (5)
  1. TAXOL [Suspect]
     Active Substance: PACLITAXEL
     Indication: BREAST CANCER
     Dosage: NO OF CYCLE: 03
     Dates: start: 20110523, end: 20110708
  2. TRASTUZUMAB. [Suspect]
     Active Substance: TRASTUZUMAB
     Indication: BREAST CANCER
     Dosage: NO OF CYCLE: 03
     Dates: start: 20110523, end: 20110708
  3. PARAPLATIN [Suspect]
     Active Substance: CARBOPLATIN
     Indication: BREAST CANCER
     Dosage: NO OF CYCLE: 03
     Dates: start: 20110523, end: 20110708
  4. DOCETAXEL ACCORD [Suspect]
     Active Substance: DOCETAXEL
     Indication: BREAST CANCER
     Dosage: NO OF CYCLE: 03
     Dates: start: 20110523, end: 20110708
  5. BIOTIN [Concomitant]
     Active Substance: BIOTIN

REACTIONS (1)
  - Alopecia [Not Recovered/Not Resolved]
